FAERS Safety Report 7270654-3 (Version None)
Quarter: 2011Q1

REPORT INFORMATION
  Report Type: 
  Country: None (occurrence: None)
  Receive Date: 20110202
  Receipt Date: 20110127
  Transmission Date: 20110831
  Serious: Yes (Hospitalization)
  Sender: FDA-Public Use
  Company Number: A0910954A

PATIENT
  Age: 51 Year
  Sex: Female

DRUGS (2)
  1. CAPECITABINE [Suspect]
     Dosage: 2000MGD UNKNOWN
     Route: 065
     Dates: start: 20100312
  2. TYKERB [Suspect]
     Dosage: 1250MG PER DAY
     Route: 065
     Dates: start: 20100312

REACTIONS (5)
  - PYREXIA [None]
  - NEUTROPENIA [None]
  - DECREASED APPETITE [None]
  - FATIGUE [None]
  - MUCOSAL INFLAMMATION [None]
